FAERS Safety Report 9016809 (Version 2)
Quarter: 2013Q1

REPORT INFORMATION
  Report Type: Report from Study
  Country: DE (occurrence: DE)
  Receive Date: 20130117
  Receipt Date: 20130125
  Transmission Date: 20140127
  Serious: Yes (Death)
  Sender: FDA-Public Use
  Company Number: PHHY2013DE003756

PATIENT
  Age: 86 Year
  Sex: Male
  Weight: 94 kg

DRUGS (1)
  1. CGP 57148B [Suspect]
     Indication: SARCOMA
     Dosage: 400 MG, UNK
     Route: 048
     Dates: start: 20110214, end: 20120618

REACTIONS (3)
  - Death [Fatal]
  - General physical health deterioration [Fatal]
  - Urinary incontinence [Fatal]
